FAERS Safety Report 6108017-6 (Version None)
Quarter: 2009Q1

REPORT INFORMATION
  Report Type: 
  Country: None (occurrence: None)
  Receive Date: 20090309
  Receipt Date: 20090227
  Transmission Date: 20090719
  Serious: Yes (Hospitalization)
  Sender: FDA-Public Use
  Company Number: US-AVENTIS-200911588US

PATIENT
  Sex: Male

DRUGS (11)
  1. LANTUS [Suspect]
     Route: 058
     Dates: start: 20070523
  2. OPTICLIK (INSULIN INJECTION PEN) [Suspect]
     Dates: start: 20070101
  3. PROGRAF [Concomitant]
     Dosage: DOSE: UNK
  4. MYFORTIC [Concomitant]
     Dosage: DOSE: UNK
  5. CARDIOVASCULAR SYSTEM DRUGS [Concomitant]
     Dosage: DOSE: UNK
  6. CHOLESTEROL- AND TRIGLYCERIDE REDUCERS [Concomitant]
     Dosage: DOSE: UNK
  7. PREDNISONE [Concomitant]
     Dosage: DOSE: UNK
  8. CALCIUM SUPPLEMENT [Concomitant]
     Dosage: DOSE: UNK
  9. MAGNESIUM SUPPLEMENT [Concomitant]
     Dosage: DOSE: UNK
  10. FLOMAX [Concomitant]
     Dosage: DOSE: UNK
  11. ASPIRIN [Concomitant]
     Dosage: DOSE: UNK

REACTIONS (2)
  - BLOOD CREATININE INCREASED [None]
  - KIDNEY TRANSPLANT REJECTION [None]
